FAERS Safety Report 6745837-9 (Version None)
Quarter: 2010Q2

REPORT INFORMATION
  Report Type: 
  Country: None (occurrence: None)
  Receive Date: 20100528
  Receipt Date: 20100519
  Transmission Date: 20101027
  Serious: Yes (Other)
  Sender: FDA-Public Use
  Company Number: NZ-NOVOPROD-288348

PATIENT
  Sex: Female

DRUGS (4)
  1. NORDITROPIN [Suspect]
     Dosage: 1.0 MG, QD
     Route: 058
     Dates: start: 20060503, end: 20081001
  2. NORDITROPIN [Suspect]
     Dosage: 1.2 MG, QD
     Route: 058
     Dates: start: 20081001, end: 20090601
  3. NORDITROPIN [Suspect]
     Dosage: 1 MG, QD
     Route: 058
     Dates: start: 20090601, end: 20090901
  4. GENOTROPIN [Concomitant]
     Dosage: 1.2 MG, QD
     Route: 058
     Dates: start: 20091101

REACTIONS (1)
  - MIGRAINE [None]
